FAERS Safety Report 5001024-6 (Version None)
Quarter: 2006Q2

REPORT INFORMATION
  Report Type: 
  Country: None (occurrence: None)
  Receive Date: 20060512
  Receipt Date: 20060508
  Transmission Date: 20061013
  Serious: Yes (Other)
  Sender: FDA-Public Use
  Company Number: CA-GLAXOSMITHKLINE-A0605146A

PATIENT
  Age: 43 Year
  Sex: Female

DRUGS (2)
  1. PAXIL CR [Suspect]
     Indication: DRUG USE FOR UNKNOWN INDICATION
     Dosage: 20MG PER DAY
     Route: 048
  2. EFFEXOR [Suspect]
     Indication: DRUG USE FOR UNKNOWN INDICATION
     Dosage: 75MG PER DAY
     Route: 048

REACTIONS (25)
  - ALOPECIA [None]
  - AMNESIA [None]
  - APHONIA [None]
  - ASTHENIA [None]
  - BURNING SENSATION [None]
  - CONJUNCTIVITIS [None]
  - DRY EYE [None]
  - FATIGUE [None]
  - GINGIVAL SWELLING [None]
  - HEADACHE [None]
  - MUSCLE SPASMS [None]
  - MYALGIA [None]
  - OEDEMA [None]
  - PALPITATIONS [None]
  - PHARYNGEAL OEDEMA [None]
  - PHARYNGOLARYNGEAL PAIN [None]
  - RASH PAPULAR [None]
  - ROSACEA [None]
  - THIRST [None]
  - TINNITUS [None]
  - TONGUE OEDEMA [None]
  - TORTICOLLIS [None]
  - TREMOR [None]
  - VARICOSE VEIN [None]
  - VULVOVAGINAL DISCOMFORT [None]
